FAERS Safety Report 9807981 (Version 2)
Quarter: 2014Q1

REPORT INFORMATION
  Report Type: Spontaneous
  Country: ES (occurrence: ES)
  Receive Date: 20140110
  Receipt Date: 20140110
  Transmission Date: 20141002
  Serious: Yes (Disabling)
  Sender: FDA-Public Use
  Company Number: ES-SA-2013SA118085

PATIENT
  Age: 53 Year
  Sex: Female
  Weight: 54.8 kg

DRUGS (5)
  1. CEREZYME [Suspect]
     Indication: GAUCHER^S DISEASE
     Dosage: DOSE:30 UNIT(S)/KILOGRAM BODYWEIGHT
     Route: 042
     Dates: start: 201207
  2. CEREZYME [Suspect]
     Indication: GAUCHER^S DISEASE
     Dosage: DOSE:45 UNIT(S)/KILOGRAM BODYWEIGHT
     Route: 042
  3. CEREZYME [Suspect]
     Indication: GAUCHER^S DISEASE
     Dosage: DOSE:30 UNIT(S)/KILOGRAM BODYWEIGHT
     Route: 042
  4. CEREZYME [Suspect]
     Indication: GAUCHER^S DISEASE
     Dosage: DOSE:60 UNIT(S)/KILOGRAM BODYWEIGHT
     Route: 042
     Dates: start: 201304
  5. SERC [Concomitant]
     Indication: DIZZINESS

REACTIONS (2)
  - Vertigo [Not Recovered/Not Resolved]
  - Headache [Not Recovered/Not Resolved]
